FAERS Safety Report 9289915 (Version 11)
Quarter: 2017Q1

REPORT INFORMATION
  Report Type: Report from Study
  Country: DE (occurrence: DE)
  Receive Date: 20130515
  Receipt Date: 20170328
  Transmission Date: 20170429
  Serious: Yes (Hospitalization)
  Sender: FDA-Public Use
  Company Number: DE-ROCHE-1223696

PATIENT
  Age: 54 Year
  Sex: Female

DRUGS (21)
  1. CALCIUM CARBONATE. [Concomitant]
     Active Substance: CALCIUM CARBONATE
     Dosage: ONE IN MORNING AND 2 IN AFTERNOON
     Route: 065
  2. RENAGEL [Concomitant]
     Active Substance: SEVELAMER HYDROCHLORIDE
     Route: 065
  3. NITROLINGUAL [Concomitant]
     Active Substance: NITROGLYCERIN
     Dosage: WHEN NEEDED
     Route: 065
  4. PHENPROCOUMON [Suspect]
     Active Substance: PHENPROCOUMON
     Indication: PRODUCT USED FOR UNKNOWN INDICATION
     Dosage: DOSE- TARGET INR 2-3 (1 IN 1 DAY)
     Route: 048
     Dates: start: 20130429, end: 20130508
  5. LEVOTHYROXINE. [Concomitant]
     Active Substance: LEVOTHYROXINE
     Route: 048
  6. RIBAVIRIN. [Suspect]
     Active Substance: RIBAVIRIN
     Indication: HEPATITIS C
     Route: 048
     Dates: start: 20121121
  7. ARANESP [Concomitant]
     Active Substance: DARBEPOETIN ALFA
     Route: 065
  8. SPIRIVA [Concomitant]
     Active Substance: TIOTROPIUM BROMIDE MONOHYDRATE
     Dosage: ONE IN MORNING
     Route: 065
  9. BISOPROLOL [Concomitant]
     Active Substance: BISOPROLOL
     Dosage: 1 IN MORNING AND ONE AT NIGHT
     Route: 048
  10. CLONIDIN (GERMANY) [Concomitant]
     Dosage: ONE IN MORNING
     Route: 048
  11. TORASEMIDE [Concomitant]
     Active Substance: TORSEMIDE
     Route: 048
  12. EBRANTIL [Concomitant]
     Active Substance: URAPIDIL
     Dosage: 1 IN MORNING AND ONE AT NIGHT
     Route: 065
  13. MINOXIDIL. [Concomitant]
     Active Substance: MINOXIDIL
     Dosage: 1 IN MORNING AND ONE AT NIGHT
     Route: 048
  14. ROCALTROL [Concomitant]
     Active Substance: CALCITRIOL
     Dosage: ONE IN MORNING
     Route: 065
  15. TELAPREVIR [Suspect]
     Active Substance: TELAPREVIR
     Indication: HEPATITIS C
     Route: 048
     Dates: start: 20121121, end: 20130213
  16. BICANORM [Concomitant]
     Active Substance: SODIUM BICARBONATE
     Dosage: 1 IN MORNING AND ONE AT NIGHT
     Route: 048
  17. CANDESARTAN [Concomitant]
     Active Substance: CANDESARTAN
     Dosage: 1 IN MORNING AND ONE AT NIGHT
     Route: 048
  18. PANTOPRAZOL [Concomitant]
     Active Substance: PANTOPRAZOLE SODIUM
     Dosage: ONE AT NIGHT
     Route: 065
  19. AMLODIPIN [Concomitant]
     Active Substance: AMLODIPINE BESYLATE
     Dosage: 1 IN MORNING AND ONE AT NIGHT
     Route: 065
  20. PEG-INTERFERON ALFA 2A [Suspect]
     Active Substance: PEGINTERFERON ALFA-2A
     Indication: HEPATITIS C
     Route: 058
     Dates: start: 20121121
  21. HYDROCHLOROTHIAZIDE. [Concomitant]
     Active Substance: HYDROCHLOROTHIAZIDE
     Dosage: ONE IN MORNING
     Route: 048

REACTIONS (2)
  - Atrial flutter [Not Recovered/Not Resolved]
  - Compartment syndrome [Recovered/Resolved]

NARRATIVE: CASE EVENT DATE: 20130428
